FAERS Safety Report 8261087-1 (Version None)
Quarter: 2012Q2

REPORT INFORMATION
  Report Type: 
  Country: None (occurrence: None)
  Receive Date: 20120405
  Receipt Date: 20120328
  Transmission Date: 20120825
  Serious: Yes (Other)
  Sender: FDA-Public Use
  Company Number: PHHY2012AR027426

PATIENT
  Weight: 2.5 kg

DRUGS (6)
  1. STEROIDS NOS [Concomitant]
     Dosage: 40 MG, QD
  2. DIOVAN [Suspect]
     Dosage: 80 MG, QD
  3. FUROSEMIDE [Concomitant]
     Dosage: 80 MG, QD
  4. THYROID HORMONES [Concomitant]
  5. ENALAPRIL [Concomitant]
     Dosage: 10 MG, QD
  6. TRILEPTAL [Concomitant]
     Dosage: 300 MG, Q8H

REACTIONS (3)
  - FOETAL EXPOSURE DURING PREGNANCY [None]
  - PREMATURE BABY [None]
  - LOW BIRTH WEIGHT BABY [None]
